FAERS Safety Report 8925069 (Version 2)
Quarter: 2014Q2

REPORT INFORMATION
  Report Type: Report from Study
  Country: AU (occurrence: AU)
  Receive Date: 20121126
  Receipt Date: 20140609
  Transmission Date: 20141212
  Serious: Yes (Hospitalization)
  Sender: FDA-Public Use
  Company Number: AU-ROCHE-1159828

PATIENT
  Age: 92 Year
  Sex: Female

DRUGS (9)
  1. METHOXY POLYETHYLENE GLYCOL-EPOETIN BETA [Suspect]
     Indication: NEPHROGENIC ANAEMIA
     Route: 065
     Dates: start: 20120419
  2. DIGOXIN-ZORI [Suspect]
     Indication: PRODUCT USED FOR UNKNOWN INDICATION
     Route: 065
  3. ASPIRIN [Concomitant]
     Route: 065
  4. OXYCONTIN [Concomitant]
     Route: 065
  5. NEXIUM [Concomitant]
     Route: 065
  6. VENLAFAXINE [Concomitant]
     Route: 065
  7. ALLOPURINOL [Concomitant]
     Route: 065
  8. COLCHICINE [Concomitant]
     Route: 065
  9. FRUSAMIDE [Concomitant]
     Route: 065

REACTIONS (1)
  - Toxicity to various agents [Unknown]
